FAERS Safety Report 20154732 (Version 2)
Quarter: 2021Q4

REPORT INFORMATION
  Report Type: Report from Study
  Country: AR (occurrence: AR)
  Receive Date: 20211207
  Receipt Date: 20211230
  Transmission Date: 20220304
  Serious: Yes (Death, Hospitalization)
  Sender: FDA-Public Use
  Company Number: AR-NOVARTISPH-NVSC2021AR058844

PATIENT
  Sex: Female

DRUGS (1)
  1. KISQALI [Suspect]
     Active Substance: RIBOCICLIB
     Indication: Breast cancer metastatic
     Dosage: 600 MG, QD
     Route: 048
     Dates: start: 20181105

REACTIONS (6)
  - Death [Fatal]
  - Gastric disorder [Unknown]
  - Fatigue [Unknown]
  - Synovial cyst [Recovered/Resolved]
  - Neoplasm [Recovering/Resolving]
  - Haemoglobin decreased [Unknown]
